FAERS Safety Report 20357005 (Version 1)
Quarter: 2022Q1

REPORT INFORMATION
  Report Type: Spontaneous
  Country: US (occurrence: US)
  Receive Date: 20220120
  Receipt Date: 20220120
  Transmission Date: 20220423
  Serious: No
  Sender: FDA-Public Use
  Company Number: US-SA-SAC20220117000054

PATIENT
  Sex: Female

DRUGS (15)
  1. DUPIXENT [Suspect]
     Active Substance: DUPILUMAB
     Indication: Dermatitis atopic
     Dosage: 300 MG, QOW
     Route: 058
     Dates: start: 20210909
  2. AMLODIPINE [Concomitant]
     Active Substance: AMLODIPINE BESYLATE
  3. BUSPIRONE HCL [Concomitant]
     Active Substance: BUSPIRONE HYDROCHLORIDE
  4. CLOPIDOGREL [Concomitant]
     Active Substance: CLOPIDOGREL BISULFATE
  5. ESCITALOPRAM [Concomitant]
     Active Substance: ESCITALOPRAM OXALATE
  6. FLUOCINONIDE [Concomitant]
     Active Substance: FLUOCINONIDE
  7. PANTOPRAZOLE [Concomitant]
     Active Substance: PANTOPRAZOLE
     Dosage: 40MG
  8. PRAVASTATIN [Concomitant]
     Active Substance: PRAVASTATIN
     Dosage: 40MG
  9. VITAMIN C [Concomitant]
     Active Substance: ASCORBIC ACID
  10. VITAMIN C [Concomitant]
     Active Substance: ASCORBIC ACID
     Dosage: 220MG
  11. ZINC SULFATE [Concomitant]
     Active Substance: ZINC SULFATE
  12. VITAMIN D NOS [Concomitant]
     Active Substance: VITAMIN D NOS
  13. RETINOL [Concomitant]
     Active Substance: RETINOL
  14. HYDROXYZINE [Concomitant]
     Active Substance: HYDROXYZINE HYDROCHLORIDE
  15. METOPROL XL [Concomitant]

REACTIONS (1)
  - Dermatitis atopic [Unknown]
